FAERS Safety Report 5615846-1 (Version None)
Quarter: 2008Q1

REPORT INFORMATION
  Report Type: 
  Country: None (occurrence: None)
  Receive Date: 20080206
  Receipt Date: 20080125
  Transmission Date: 20080703
  Serious: Yes (Other)
  Sender: FDA-Public Use
  Company Number: US-ELI_LILLY_AND_COMPANY-US200801005805

PATIENT
  Age: 38 Year
  Sex: Female
  Weight: 72.562 kg

DRUGS (3)
  1. CYMBALTA [Suspect]
     Indication: BIPOLAR DISORDER
     Dosage: 60 MG, 2/D
     Dates: start: 20060615, end: 20070101
  2. CYMBALTA [Suspect]
     Dosage: 60 MG, 2/D
     Dates: start: 20070101, end: 20071221
  3. LAMICTAL [Concomitant]
     Indication: BIPOLAR DISORDER

REACTIONS (7)
  - ARTHRALGIA [None]
  - DIZZINESS [None]
  - FEAR [None]
  - FIBROMYALGIA [None]
  - INFLUENZA LIKE ILLNESS [None]
  - MYALGIA [None]
  - SUICIDAL IDEATION [None]
